FAERS Safety Report 21771813 (Version 1)
Quarter: 2022Q4

REPORT INFORMATION
  Report Type: Spontaneous
  Country: US (occurrence: None)
  Receive Date: 20221222
  Receipt Date: 20221222
  Transmission Date: 20230113
  Serious: Yes (Other)
  Sender: FDA-Public Use
  Company Number: None

PATIENT
  Age: 33 Year
  Sex: Female
  Weight: 45 kg

DRUGS (1)
  1. SULFAMETHOXAZOLE AND TRIMETHOPRIM [Suspect]
     Active Substance: SULFAMETHOXAZOLE\TRIMETHOPRIM
     Indication: Urinary tract infection
     Dosage: OTHER QUANTITY : 1 TABLET(S);?FREQUENCY : TWICE A DAY;?
     Route: 048
     Dates: start: 20221201, end: 20221203

REACTIONS (10)
  - Vulvovaginal pruritus [None]
  - Vulvovaginal burning sensation [None]
  - Vulvovaginal pain [None]
  - Vulval disorder [None]
  - Vulvovaginal swelling [None]
  - Fungal infection [None]
  - Erythema [None]
  - Skin exfoliation [None]
  - Genital ulceration [None]
  - Stevens-Johnson syndrome [None]

NARRATIVE: CASE EVENT DATE: 20221201
